FAERS Safety Report 6132585-1 (Version None)
Quarter: 2009Q1

REPORT INFORMATION
  Report Type: 
  Country: None (occurrence: None)
  Receive Date: 20090324
  Receipt Date: 20090313
  Transmission Date: 20090719
  Serious: Yes (Hospitalization)
  Sender: FDA-Public Use
  Company Number: GXKR2009GB03338

PATIENT
  Age: 54 Year
  Sex: Male

DRUGS (3)
  1. RAMIPRIL [Suspect]
     Indication: HYPERTENSION
     Dosage: 300 MG, ONCE/SINGLE, ORAL
     Route: 048
  2. RANITIDINE [Suspect]
     Dosage: 4500 MG, ONCE/SINGLE, ORAL
     Route: 048
  3. SIMVASTATIN [Suspect]
     Dosage: 600 MG, ONCE/SINGLE, ORAL
     Route: 048

REACTIONS (2)
  - BLOOD PRESSURE DECREASED [None]
  - OVERDOSE [None]
